FAERS Safety Report 8545762-7 (Version None)
Quarter: 2012Q3

REPORT INFORMATION
  Report Type: 
  Country: None (occurrence: None)
  Receive Date: 20120727
  Receipt Date: 20120718
  Transmission Date: 20120928
  Serious: Yes (Hospitalization)
  Sender: FDA-Public Use
  Company Number: FR-ASTRAZENECA-2012SE50339

PATIENT
  Age: 17616 Day
  Sex: Male

DRUGS (5)
  1. ZOPICLONE [Concomitant]
     Route: 048
     Dates: start: 20120320, end: 20120412
  2. THERALENE [Concomitant]
     Route: 048
     Dates: start: 20120320, end: 20120412
  3. SEROQUEL [Suspect]
     Route: 048
     Dates: start: 20120404, end: 20120412
  4. ALPRAZOLAM [Concomitant]
     Route: 048
     Dates: start: 20120404, end: 20120412
  5. VALIUM [Concomitant]
     Route: 048
     Dates: start: 20120202, end: 20120412

REACTIONS (5)
  - HYPERTENSION [None]
  - BLOOD CREATINE PHOSPHOKINASE INCREASED [None]
  - HYPERTHERMIA [None]
  - HYPERTONIA [None]
  - NEUROLEPTIC MALIGNANT SYNDROME [None]
